FAERS Safety Report 5793242-4 (Version None)
Quarter: 2008Q2

REPORT INFORMATION
  Report Type: 
  Country: None (occurrence: None)
  Receive Date: 20080627
  Receipt Date: 20080620
  Transmission Date: 20081010
  Serious: Yes (Other)
  Sender: FDA-Public Use
  Company Number: GB-ASTRAZENECA-2003GB02687

PATIENT
  Age: 14 Year
  Sex: Female

DRUGS (4)
  1. SEROQUEL [Suspect]
     Indication: SCHIZOAFFECTIVE DISORDER
     Dosage: 150 MG IN THE MORNING + 450 MG AT NIGHT.
     Route: 048
     Dates: start: 20030326
  2. LUSTRAL [Suspect]
     Indication: OBSESSIVE-COMPULSIVE DISORDER
     Route: 048
     Dates: end: 20030820
  3. LUSTRAL [Suspect]
     Route: 048
     Dates: start: 20030901
  4. PRIADEL [Suspect]
     Indication: AFFECTIVE DISORDER
     Route: 048
     Dates: start: 20030122

REACTIONS (2)
  - BLOOD PROLACTIN INCREASED [None]
  - HYPERPROLACTINAEMIA [None]
